FAERS Safety Report 8915858 (Version 1)
Quarter: 2012Q4

REPORT INFORMATION
  Report Type: 
  Country: US (occurrence: US)
  Receive Date: 20121119
  Receipt Date: 20121119
  Transmission Date: 20130627
  Serious: No
  Sender: FDA-Public Use
  Company Number: US-PFIZER INC-2012288404

PATIENT
  Age: 45 Year
  Sex: Female
  Weight: 81.63 kg

DRUGS (3)
  1. CHANTIX [Suspect]
     Indication: SMOKING CESSATION THERAPY
     Dosage: 0.5 mg, daily
     Dates: start: 20121106, end: 201211
  2. CHANTIX [Suspect]
     Dosage: 1 mg, 2x/day
     Dates: start: 201211
  3. ENALAPRIL [Concomitant]
     Indication: BLOOD PRESSURE ABNORMAL
     Dosage: 10 mg, daily

REACTIONS (1)
  - Hyperhidrosis [Not Recovered/Not Resolved]
